FAERS Safety Report 6493748-9 (Version None)
Quarter: 2009Q4

REPORT INFORMATION
  Report Type: 
  Country: None (occurrence: None)
  Receive Date: 20091214
  Receipt Date: 20081103
  Transmission Date: 20100525
  Serious: No
  Sender: FDA-Public Use
  Company Number: US-BRISTOL-MYERS SQUIBB COMPANY-14304695

PATIENT
  Age: 46 Year
  Sex: Female

DRUGS (3)
  1. ABILIFY [Suspect]
     Indication: SCHIZOAFFECTIVE DISORDER
     Dosage: TAKING FOR 4-6 WEEKS, SINCE 05SEP07-15MG/D
     Dates: start: 20080212
  2. ABILIFY [Suspect]
     Indication: BIPOLAR DISORDER
     Dosage: TAKING FOR 4-6 WEEKS, SINCE 05SEP07-15MG/D
     Dates: start: 20080212
  3. LAMICTAL [Concomitant]

REACTIONS (1)
  - BLOOD TRIGLYCERIDES INCREASED [None]
